FAERS Safety Report 23042033 (Version 1)
Quarter: 2023Q4

REPORT INFORMATION
  Report Type: Spontaneous
  Country: CA (occurrence: CA)
  Receive Date: 20231008
  Receipt Date: 20231008
  Transmission Date: 20240109
  Serious: Yes (Hospitalization)
  Sender: FDA-Public Use
  Company Number: CA-SANDOZ-SDZ2023CA037502

PATIENT
  Age: 30 Year
  Sex: Male

DRUGS (1)
  1. ADALIMUMAB [Suspect]
     Active Substance: ADALIMUMAB
     Indication: Ankylosing spondylitis
     Dosage: 40.0 MG,(1 EVERY 14 DAYS)
     Route: 058

REACTIONS (5)
  - Cold sweat [Unknown]
  - Gastric ulcer [Unknown]
  - Migraine [Unknown]
  - Tremor [Unknown]
  - Vomiting [Unknown]
